FAERS Safety Report 10752615 (Version 1)
Quarter: 2015Q1

REPORT INFORMATION
  Report Type: Report from Study
  Country: US (occurrence: US)
  Receive Date: 20150130
  Receipt Date: 20150130
  Transmission Date: 20150721
  Serious: No
  Sender: FDA-Public Use
  Company Number: US-ABBVIE-14P-163-1197134-00

PATIENT
  Age: 66 Year
  Sex: Male
  Weight: 99.88 kg

DRUGS (2)
  1. LUPRON DEPOT [Suspect]
     Active Substance: LEUPROLIDE ACETATE
     Indication: PROSTATE CANCER
     Dates: start: 201311
  2. BICALUTAMIDE. [Concomitant]
     Active Substance: BICALUTAMIDE
     Indication: PROSTATE CANCER
     Dates: start: 201308, end: 20131227

REACTIONS (3)
  - Musculoskeletal pain [Not Recovered/Not Resolved]
  - Lipoma [Not Recovered/Not Resolved]
  - Mass [Not Recovered/Not Resolved]

NARRATIVE: CASE EVENT DATE: 201401
